FAERS Safety Report 12338933 (Version 1)
Quarter: 2016Q2

REPORT INFORMATION
  Report Type: Spontaneous
  Country: US (occurrence: US)
  Receive Date: 20160505
  Receipt Date: 20160505
  Transmission Date: 20160815
  Serious: Yes (Other)
  Sender: FDA-Public Use
  Company Number: US-PFIZER INC-2016242006

PATIENT
  Sex: Female
  Weight: 63.49 kg

DRUGS (1)
  1. IBRANCE [Suspect]
     Active Substance: PALBOCICLIB
     Indication: BREAST CANCER
     Dosage: 125 MG, CYCLIC (D1-D21 Q 28 D)
     Route: 048
     Dates: start: 20160406

REACTIONS (1)
  - Hot flush [Unknown]

NARRATIVE: CASE EVENT DATE: 20160502
